FAERS Safety Report 10067327 (Version 1)
Quarter: 2014Q2

REPORT INFORMATION
  Report Type: Spontaneous
  Country: US (occurrence: None)
  Receive Date: 20140407
  Receipt Date: 20140407
  Transmission Date: 20141212
  Serious: Yes (Life-Threatening, Hospitalization, Other)
  Sender: FDA-Public Use
  Company Number: FK201401120

PATIENT
  Age: 22 Year
  Sex: Female

DRUGS (13)
  1. AZITHROMYCIN [Suspect]
     Indication: MYCOBACTERIUM AVIUM COMPLEX INFECTION
  2. LEVOFLOXACIN [Suspect]
     Indication: MYCOBACTERIUM AVIUM COMPLEX INFECTION
  3. DAPSONE [Suspect]
     Indication: MYCOBACTERIUM AVIUM COMPLEX INFECTION
  4. RALTEGRAVIR (RALTEGRAVIR) [Concomitant]
  5. ETRAVIRINE [Concomitant]
  6. VANCOMYCIN [Concomitant]
  7. PIPERACILLIN/TAZOBACTAM (PIP/TAZO) [Concomitant]
  8. MOXIFLOXACIN [Concomitant]
  9. ETHAMBUTOL [Concomitant]
  10. RIFABUTIN [Concomitant]
  11. TRIMETHOPRIM/SULFAMETHOXAZOLE (BACTRIM) [Concomitant]
  12. FLUCONAZOLE [Concomitant]
  13. ACICLOVIR [Concomitant]

REACTIONS (13)
  - Brain oedema [None]
  - Posterior reversible encephalopathy syndrome [None]
  - Immune reconstitution inflammatory syndrome [None]
  - Pancytopenia [None]
  - Hilar lymphadenopathy [None]
  - Mycobacterium avium complex infection [None]
  - Hepatomegaly [None]
  - Splenomegaly [None]
  - Hypochromic anaemia [None]
  - Leukopenia [None]
  - Weight decreased [None]
  - Night sweats [None]
  - Convulsion [None]
